FAERS Safety Report 14320047 (Version 2)
Quarter: 2018Q1

REPORT INFORMATION
  Report Type: Not Available
  Country: US (occurrence: US)
  Receive Date: 20171222
  Receipt Date: 20180302
  Transmission Date: 20180509
  Serious: Yes (Hospitalization)
  Sender: FDA-Public Use
  Company Number: US-NEUROCRINE BIOSCIENCES INC.-2017NBI01987

PATIENT
  Age: 70 Year
  Sex: Female

DRUGS (11)
  1. OLANZAPINE. [Suspect]
     Active Substance: OLANZAPINE
     Dosage: AT BEDTIME
     Dates: start: 201712
  2. RITALIN LA [Concomitant]
     Active Substance: METHYLPHENIDATE HYDROCHLORIDE
     Indication: ATTENTION DEFICIT/HYPERACTIVITY DISORDER
  3. LAMOTRIGINE. [Concomitant]
     Active Substance: LAMOTRIGINE
     Indication: BIPOLAR DISORDER
  4. FENTANYL. [Concomitant]
     Active Substance: FENTANYL
     Indication: PAIN
  5. SUMATRIPTAN. [Concomitant]
     Active Substance: SUMATRIPTAN
     Indication: MIGRAINE
     Dosage: AS NEEDED
  6. OLANZAPINE. [Suspect]
     Active Substance: OLANZAPINE
     Indication: BIPOLAR DISORDER
     Dosage: AT BEDTIME
     Dates: start: 20171124, end: 2017
  7. INGREZZA [Suspect]
     Active Substance: VALBENAZINE
     Route: 048
     Dates: start: 20171213, end: 20171213
  8. GABAPENTIN. [Concomitant]
     Active Substance: GABAPENTIN
     Indication: PAIN
     Dosage: 800 MG IN THE MORNING AND AFTERNOON, AND 1600 AT BEDTIME FOR PAIN
  9. WELLBUTRIN [Concomitant]
     Active Substance: BUPROPION HYDROCHLORIDE
     Indication: BIPOLAR DISORDER
  10. INGREZZA [Suspect]
     Active Substance: VALBENAZINE
     Indication: TARDIVE DYSKINESIA
     Route: 048
     Dates: start: 20171205, end: 20171212
  11. ALPRAZOLAM. [Concomitant]
     Active Substance: ALPRAZOLAM
     Indication: ANXIETY

REACTIONS (4)
  - Spinal fracture [Unknown]
  - Rib fracture [Unknown]
  - Musculoskeletal discomfort [Unknown]
  - Fall [Unknown]

NARRATIVE: CASE EVENT DATE: 20171213
